FAERS Safety Report 26081715 (Version 1)
Quarter: 2025Q4

REPORT INFORMATION
  Report Type: Report from Study
  Country: AE (occurrence: AE)
  Receive Date: 20251124
  Receipt Date: 20251124
  Transmission Date: 20260118
  Serious: Yes (Other)
  Sender: ALEXION PHARMACEUTICALS
  Company Number: AE-AstraZeneca-CH-00995851A

PATIENT
  Sex: Female

DRUGS (2)
  1. FASENRA [Suspect]
     Active Substance: BENRALIZUMAB
     Indication: Asthma
     Dosage: 30 MILLIGRAM  EVERY 8 WEEKS
  2. FASENRA [Suspect]
     Active Substance: BENRALIZUMAB

REACTIONS (8)
  - Type 2 diabetes mellitus [Unknown]
  - Cough [Unknown]
  - Bronchitis [Unknown]
  - Sleep apnoea syndrome [Unknown]
  - Back pain [Unknown]
  - Hyperlipidaemia [Unknown]
  - Periarthritis [Unknown]
  - Hypertension [Unknown]

NARRATIVE: CASE EVENT DATE: 20251101
